FAERS Safety Report 12969125 (Version 1)
Quarter: 2016Q4

REPORT INFORMATION
  Report Type: Report from Study
  Country: DE (occurrence: DE)
  Receive Date: 20161123
  Receipt Date: 20161123
  Transmission Date: 20170207
  Serious: Yes (Other)
  Sender: FDA-Public Use
  Company Number: DE-BAYER-2016-223868

PATIENT
  Sex: Female

DRUGS (1)
  1. BETAFERON [Suspect]
     Active Substance: INTERFERON BETA-1B

REACTIONS (10)
  - Dyspepsia [None]
  - Constipation [None]
  - Pruritus [None]
  - Hypertension [None]
  - Skin reaction [None]
  - Chills [None]
  - White blood cell count increased [None]
  - Coagulopathy [None]
  - Goitre [None]
  - Abdominal pain upper [None]
